FAERS Safety Report 19519249 (Version 1)
Quarter: 2021Q3

REPORT INFORMATION
  Report Type: Spontaneous
  Country: US (occurrence: US)
  Receive Date: 20210712
  Receipt Date: 20210712
  Transmission Date: 20211014
  Serious: No
  Sender: FDA-Public Use
  Company Number: None

PATIENT
  Age: 75 Year
  Sex: Male

DRUGS (1)
  1. DAPTOMYCIN (DAPTOMYCIN 250MG/VL INJ) [Suspect]
     Active Substance: DAPTOMYCIN
     Indication: UPPER RESPIRATORY TRACT INFECTION
     Dates: start: 20210209, end: 20210302

REACTIONS (3)
  - Therapy change [None]
  - Eosinophilic pneumonia [None]
  - Respiratory depression [None]

NARRATIVE: CASE EVENT DATE: 20210303
